FAERS Safety Report 9863942 (Version 2)
Quarter: 2014Q1

REPORT INFORMATION
  Report Type: Report from Study
  Country: AU (occurrence: AU)
  Receive Date: 20140203
  Receipt Date: 20140217
  Transmission Date: 20141002
  Serious: Yes (Hospitalization, Other)
  Sender: FDA-Public Use
  Company Number: PHHY2014AU012104

PATIENT
  Age: 79 Year
  Sex: Female

DRUGS (7)
  1. ACLASTA [Suspect]
     Indication: OSTEOPOROSIS
     Dosage: 5 MG, UNK
     Route: 042
  2. ACLASTA [Suspect]
     Dosage: 5 MG, UNK
     Route: 042
     Dates: start: 201209
  3. ACLASTA [Suspect]
     Dosage: 5 MG, UNK
     Route: 042
     Dates: start: 201210
  4. ACLASTA [Suspect]
     Dosage: 5 MG, UNK
     Route: 042
  5. ACLASTA [Suspect]
     Dosage: 5 MG, UNK
     Route: 042
  6. PREDNISOLONE [Concomitant]
     Indication: RHEUMATOID ARTHRITIS
     Dosage: 5 MG, DAILY
  7. SOMAC [Concomitant]
     Dosage: UNK UKN, UNK

REACTIONS (2)
  - Fall [Unknown]
  - Femoral neck fracture [Unknown]
